FAERS Safety Report 24957057 (Version 2)
Quarter: 2025Q1

REPORT INFORMATION
  Report Type: 
  Country: US (occurrence: US)
  Receive Date: 20250211
  Receipt Date: 20250317
  Transmission Date: 20250409
  Serious: No
  Sender: JAZZ
  Company Number: US-JAZZ PHARMACEUTICALS-2025-US-003479

PATIENT
  Sex: Male

DRUGS (1)
  1. EPIDIOLEX [Suspect]
     Active Substance: CANNABIDIOL
     Indication: Lennox-Gastaut syndrome
     Dosage: 3 MILLILITER, BID
     Route: 048

REACTIONS (1)
  - No adverse event [Unknown]
